FAERS Safety Report 5502952-5 (Version None)
Quarter: 2007Q4

REPORT INFORMATION
  Report Type: 
  Country: None (occurrence: None)
  Receive Date: 20071031
  Receipt Date: 20071029
  Transmission Date: 20080405
  Serious: Yes (Hospitalization)
  Sender: FDA-Public Use
  Company Number: B0493063A

PATIENT
  Age: 35 Year
  Sex: Male

DRUGS (8)
  1. TELZIR [Suspect]
     Indication: HIV INFECTION
     Route: 048
     Dates: start: 20070511, end: 20070716
  2. NORVIR [Suspect]
     Indication: HIV INFECTION
     Route: 048
     Dates: start: 20070511, end: 20070726
  3. REYATAZ [Suspect]
     Indication: HIV INFECTION
     Route: 048
     Dates: start: 20070716, end: 20070726
  4. EPIVIR [Concomitant]
     Indication: HIV INFECTION
     Route: 048
     Dates: end: 20070726
  5. VIDEX [Concomitant]
     Indication: HIV INFECTION
     Route: 048
     Dates: end: 20070726
  6. SEROPRAM [Concomitant]
     Indication: AFFECTIVE DISORDER
     Route: 048
  7. DEPAKOTE [Concomitant]
     Indication: AFFECTIVE DISORDER
     Route: 048
     Dates: start: 20070614
  8. ANDROTARDYL [Concomitant]
     Indication: LIBIDO DISORDER
     Route: 065
     Dates: start: 20070614, end: 20070726

REACTIONS (2)
  - DYSHIDROSIS [None]
  - URTICARIA [None]
